FAERS Safety Report 18150266 (Version 1)
Quarter: 2020Q3

REPORT INFORMATION
  Report Type: Spontaneous
  Country: GB (occurrence: GB)
  Receive Date: 20200814
  Receipt Date: 20200814
  Transmission Date: 20201103
  Serious: Yes (Hospitalization)
  Sender: FDA-Public Use
  Company Number: GB-MYLANLABS-2020M1070407

PATIENT
  Age: 81 Year
  Sex: Female

DRUGS (16)
  1. CLOPIDOGREL [Suspect]
     Active Substance: CLOPIDOGREL BISULFATE
     Indication: PRODUCT USED FOR UNKNOWN INDICATION
     Dosage: 75 MILLIGRAM, QD
     Route: 048
  2. HYDROXYZINE [Concomitant]
     Active Substance: HYDROXYZINE HYDROCHLORIDE
  3. RIVAROXABAN [Suspect]
     Active Substance: RIVAROXABAN
     Indication: ATRIAL FIBRILLATION
     Dosage: 20 MILLIGRAM, QD
     Route: 048
  4. PREGABALIN. [Concomitant]
     Active Substance: PREGABALIN
  5. ATORVASTATIN [Concomitant]
     Active Substance: ATORVASTATIN
  6. GLYCERYL TRINITRATE [Concomitant]
     Active Substance: NITROGLYCERIN
  7. DIGOXIN. [Concomitant]
     Active Substance: DIGOXIN
  8. ALLOPURINOL. [Concomitant]
     Active Substance: ALLOPURINOL
  9. PARACETAMOL [Concomitant]
     Active Substance: ACETAMINOPHEN
  10. LANSOPRAZOLE. [Concomitant]
     Active Substance: LANSOPRAZOLE
  11. BISOPROLOL [Concomitant]
     Active Substance: BISOPROLOL
  12. FOLIC ACID. [Concomitant]
     Active Substance: FOLIC ACID
  13. RAMIPRIL. [Concomitant]
     Active Substance: RAMIPRIL
  14. ADCAL D3 [Concomitant]
     Active Substance: CALCIUM CARBONATE\CHOLECALCIFEROL
  15. CITALOPRAM [Concomitant]
     Active Substance: CITALOPRAM HYDROBROMIDE
  16. MEBEVERINE HYDROCHLORIDE [Concomitant]
     Active Substance: MEBEVERINE HYDROCHLORIDE

REACTIONS (4)
  - Chest pain [Unknown]
  - Dyspnoea exertional [Unknown]
  - Gastrointestinal disorder [Recovering/Resolving]
  - Haemoglobin decreased [Unknown]
